FAERS Safety Report 4908595-6 (Version None)
Quarter: 2006Q1

REPORT INFORMATION
  Report Type: 
  Country: None (occurrence: None)
  Receive Date: 20060210
  Receipt Date: 20050912
  Transmission Date: 20060701
  Serious: No
  Sender: FDA-Public Use
  Company Number: US-GLAXOSMITHKLINE-A0573931A

PATIENT
  Sex: Female
  Weight: 105 kg

DRUGS (2)
  1. PAXIL CR [Suspect]
     Indication: PANIC REACTION
     Dosage: 25MG PER DAY
     Route: 048
  2. UNKNOWN MEDICATION [Concomitant]
     Dosage: .25MG PER DAY
     Route: 065

REACTIONS (1)
  - DRUG INEFFECTIVE [None]
